FAERS Safety Report 14952160 (Version 1)
Quarter: 2018Q2

REPORT INFORMATION
  Report Type: Spontaneous
  Country: US (occurrence: US)
  Receive Date: 20180509
  Receipt Date: 20180509
  Transmission Date: 20180711
  Serious: Yes (Other)
  Sender: FDA-Public Use
  Company Number: None

PATIENT
  Age: 66 Year
  Sex: Male
  Weight: 157.5 kg

DRUGS (14)
  1. ANCEF [Suspect]
     Active Substance: CEFAZOLIN SODIUM
     Indication: CARDIAC PACEMAKER INSERTION
     Dosage: ?          OTHER FREQUENCY:THREE TIMES;OTHER ROUTE:IN IV?
     Dates: start: 20180423, end: 20180425
  2. VITAMIN D3 [Concomitant]
     Active Substance: CHOLECALCIFEROL
  3. COQ10 [Concomitant]
     Active Substance: UBIDECARENONE
  4. LANTUS - SLOW INSULIN PEN [Concomitant]
  5. HUMALOG [Concomitant]
     Active Substance: INSULIN LISPRO
  6. GLUCOSAMINE [Concomitant]
     Active Substance: GLUCOSAMINE
  7. VALSARTAN. [Concomitant]
     Active Substance: VALSARTAN
  8. EZETIMIBE. [Concomitant]
     Active Substance: EZETIMIBE
  9. CHONDROITIN [Concomitant]
     Active Substance: CHONDROITIN
  10. MSM [Concomitant]
     Active Substance: DIMETHYL SULFONE
  11. FISH OIL/OMEGA3 [Concomitant]
  12. FENOFIBRATE. [Concomitant]
     Active Substance: FENOFIBRATE
  13. ANDROGEL [Concomitant]
     Active Substance: TESTOSTERONE
  14. MULTI VITAMIN [Concomitant]
     Active Substance: VITAMINS

REACTIONS (2)
  - Rash [None]
  - Pain [None]

NARRATIVE: CASE EVENT DATE: 20180501
